FAERS Safety Report 4303873-6 (Version None)
Quarter: 2004Q1

REPORT INFORMATION
  Report Type: 
  Country: None (occurrence: None)
  Receive Date: 20040225
  Receipt Date: 20040213
  Transmission Date: 20041129
  Serious: Yes (Hospitalization)
  Sender: FDA-Public Use
  Company Number: PT-GLAXOSMITHKLINE-B0323260A

PATIENT
  Age: 55 Year
  Sex: Female

DRUGS (3)
  1. CLAMOXYL [Suspect]
     Indication: TONSILLITIS
     Dosage: 500MG THREE TIMES PER DAY
     Route: 048
     Dates: start: 19880818, end: 19880820
  2. NIFEDIPINE [Concomitant]
     Route: 048
  3. AMILORIDE HCL AND HYDROCHLOROTHIAZIDE [Concomitant]
     Route: 048

REACTIONS (3)
  - OEDEMA PERIPHERAL [None]
  - RASH MACULO-PAPULAR [None]
  - TOXIC SKIN ERUPTION [None]
